FAERS Safety Report 4804339-7 (Version None)
Quarter: 2005Q4

REPORT INFORMATION
  Report Type: 
  Country: None (occurrence: None)
  Receive Date: 20051020
  Receipt Date: 20051010
  Transmission Date: 20060501
  Serious: Yes (Other)
  Sender: FDA-Public Use
  Company Number: DE-NOVOPROD-247610

PATIENT
  Age: 16 Year
  Sex: Female
  Weight: 50 kg

DRUGS (19)
  1. NOVONORM [Suspect]
     Indication: DIABETES MELLITUS
     Dosage: .5 MG, TID
     Route: 048
     Dates: start: 20050916, end: 20051007
  2. NOVONORM [Suspect]
     Dosage: .5 MG, TID
     Route: 048
     Dates: start: 20051017
  3. CIPROFLOXACIN [Concomitant]
     Dosage: 1000 MG, BID
     Route: 048
     Dates: start: 20050904, end: 20051006
  4. CIPROFLOXACIN [Concomitant]
     Dosage: 1000 MG, BID
     Route: 048
     Dates: start: 20051012
  5. TOBRAMYCIN [Concomitant]
     Dosage: 160 MG, BID
     Route: 055
  6. SALMETEROL [Concomitant]
     Dosage: 100 UG, BID
     Route: 055
  7. FLUTICASONE [Concomitant]
     Dates: end: 20051006
  8. FLUTICASONE [Concomitant]
     Dates: start: 20051012
  9. VITAMIN D [Concomitant]
     Dosage: 1000 IE, UNK
     Route: 048
     Dates: end: 20051006
  10. VITAMIN D [Concomitant]
     Dosage: 1000 IE, UNK
     Route: 048
     Dates: start: 20051012
  11. VITAMIN E [Concomitant]
     Dosage: 500 IE, QD
     Route: 048
     Dates: end: 20051006
  12. VITAMIN E [Concomitant]
     Dosage: 500 IE, QD
     Route: 048
     Dates: start: 20051012
  13. MONTELUKAST [Concomitant]
     Dosage: 10 MG, UNK
     Route: 048
     Dates: end: 20051006
  14. MONTELUKAST [Concomitant]
     Dosage: 10 MG, QD
     Route: 048
     Dates: start: 20051012
  15. URSODEOXYCHOLIC ACID [Concomitant]
     Dosage: 800 MG, BID
     Route: 048
     Dates: end: 20051006
  16. URSODEOXYCHOLIC ACID [Concomitant]
     Dosage: 800 MG, BID
     Route: 048
     Dates: start: 20051012
  17. LACTULOSE [Concomitant]
     Dosage: 15 ML, BID
     Dates: start: 20051012
  18. PANZYTRAT [Concomitant]
     Route: 048
  19. ACETYLCYSTEINE [Concomitant]

REACTIONS (3)
  - ABDOMINAL PAIN [None]
  - CONSTIPATION [None]
  - INTESTINAL OBSTRUCTION [None]
